FAERS Safety Report 7581337-4 (Version None)
Quarter: 2011Q2

REPORT INFORMATION
  Report Type: 
  Country: None (occurrence: None)
  Receive Date: 20110629
  Receipt Date: 20110624
  Transmission Date: 20111010
  Serious: Yes (Hospitalization)
  Sender: FDA-Public Use
  Company Number: FR-ABBOTT-11P-056-0728062-00

PATIENT
  Sex: Male

DRUGS (2)
  1. HUMIRA [Concomitant]
     Route: 058
     Dates: start: 20080226
  2. HUMIRA [Suspect]
     Indication: PSORIASIS
     Route: 058
     Dates: start: 20100415, end: 20110125

REACTIONS (1)
  - THROMBOSIS IN DEVICE [None]
